FAERS Safety Report 5008655-8 (Version None)
Quarter: 2006Q2

REPORT INFORMATION
  Report Type: 
  Country: None (occurrence: None)
  Receive Date: 20060523
  Receipt Date: 20060518
  Transmission Date: 20061013
  Serious: Yes (Other)
  Sender: FDA-Public Use
  Company Number: BPC-ZN-06-249

PATIENT
  Age: 34 Year
  Sex: Male
  Weight: 84.1 kg

DRUGS (2)
  1. ZYBAN [Suspect]
     Route: 048
     Dates: start: 20060401
  2. ALCOHOLIC BEVERAGE [Suspect]
     Route: 048

REACTIONS (7)
  - ASTHENIA [None]
  - DIZZINESS [None]
  - HEPATIC ENZYME INCREASED [None]
  - HYPERHIDROSIS [None]
  - NAUSEA [None]
  - PERFORMANCE STATUS DECREASED [None]
  - TREMOR [None]
